FAERS Safety Report 8369884-9 (Version None)
Quarter: 2012Q1

REPORT INFORMATION
  Report Type: 
  Country: None (occurrence: None)
  Receive Date: 20120323
  Receipt Date: 20110110
  Transmission Date: 20120608
  Serious: Yes (Hospitalization, Other)
  Sender: FDA-Public Use
  Company Number: 163-21880-11012147

PATIENT
  Age: 67 Year
  Sex: Female
  Weight: 81.5 kg

DRUGS (1)
  1. REVLIMID [Suspect]
     Indication: MULTIPLE MYELOMA
     Dosage: 15 MG, DAILY DAYS 1-14 EVERY 3  WEEKS, PO
     Route: 048
     Dates: start: 20100916

REACTIONS (4)
  - CELLULITIS [None]
  - DIARRHOEA [None]
  - OEDEMA PERIPHERAL [None]
  - HYPOKALAEMIA [None]
